FAERS Safety Report 23889213 (Version 1)
Quarter: 2024Q2

REPORT INFORMATION
  Report Type: Spontaneous
  Country: US (occurrence: US)
  Receive Date: 20240523
  Receipt Date: 20240523
  Transmission Date: 20240716
  Serious: No
  Sender: FDA-Public Use
  Company Number: US-JUBILANT RADIOPHARMA-2024US000201

PATIENT

DRUGS (1)
  1. DRAXIMAGE MAA [Suspect]
     Active Substance: TECHNETIUM TC-99M ALBUMIN AGGREGATED
     Indication: Ventilation/perfusion scan
     Dosage: UNK, SINGLE DOSE

REACTIONS (3)
  - Drug effect less than expected [Recovered/Resolved]
  - Product dispensing error [Recovered/Resolved]
  - Radioisotope uptake increased [Recovered/Resolved]

NARRATIVE: CASE EVENT DATE: 20240416
